FAERS Safety Report 10738776 (Version 5)
Quarter: 2015Q3

REPORT INFORMATION
  Report Type: Report from Study
  Country: GR (occurrence: GR)
  Receive Date: 20150126
  Receipt Date: 20150710
  Transmission Date: 20151125
  Serious: Yes (Death, Life-Threatening, Hospitalization)
  Sender: FDA-Public Use
  Company Number: GR-009507513-1407GRC001392

PATIENT
  Age: 72 Year
  Sex: Male

DRUGS (7)
  1. TEGRETOL [Concomitant]
     Active Substance: CARBAMAZEPINE
     Dosage: 400 MG, 1X1
     Dates: start: 20140415, end: 20140626
  2. TRIMETHOPRIM. [Concomitant]
     Active Substance: TRIMETHOPRIM
     Dosage: UNK, ONCE (X1)
  3. BEVACIZUMAB [Suspect]
     Active Substance: BEVACIZUMAB
     Indication: BRAIN NEOPLASM MALIGNANT
     Dosage: 770 MG, QOW
     Route: 042
     Dates: start: 20140515, end: 20140721
  4. TEMODAL [Suspect]
     Active Substance: TEMOZOLOMIDE
     Indication: BRAIN NEOPLASM MALIGNANT
     Dosage: 140 MG, 5 X PER WEEK
     Route: 048
     Dates: start: 20140515, end: 20140625
  5. BACTRIMEL [Concomitant]
     Active Substance: SULFAMETHOXAZOLE\TRIMETHOPRIM
     Dosage: 800 + 160 MG
     Dates: start: 20140415, end: 20140911
  6. TEMODAL [Suspect]
     Active Substance: TEMOZOLOMIDE
     Dosage: 140 MG, 5 X PER WEEK
     Route: 048
     Dates: start: 20140724
  7. KEPPRA [Concomitant]
     Active Substance: LEVETIRACETAM
     Dosage: 2 G, 1 IN 1 DAY
     Dates: start: 20140415, end: 20140911

REACTIONS (5)
  - Pneumonia [Recovered/Resolved]
  - Thrombocytopenia [Not Recovered/Not Resolved]
  - Febrile neutropenia [Recovered/Resolved]
  - Pneumonia [Not Recovered/Not Resolved]
  - Glioblastoma [Fatal]

NARRATIVE: CASE EVENT DATE: 20140626
